FAERS Safety Report 5963081-X (Version None)
Quarter: 2008Q4

REPORT INFORMATION
  Report Type: 
  Country: None (occurrence: None)
  Receive Date: 20081124
  Receipt Date: 20081111
  Transmission Date: 20090506
  Serious: Yes (Other)
  Sender: FDA-Public Use
  Company Number: US-ROCHE-596937

PATIENT
  Age: 51 Year
  Sex: Female

DRUGS (3)
  1. CELLCEPT [Suspect]
     Route: 065
  2. PREDNISONE TAB [Concomitant]
  3. ANTIHYPERTENSIVE NOS [Concomitant]
     Indication: BLOOD PRESSURE
     Dosage: DRUG: BLOOD PRESSURE MEDICINE

REACTIONS (1)
  - SYSTEMIC LUPUS ERYTHEMATOSUS [None]
